FAERS Safety Report 10915981 (Version 1)
Quarter: 2015Q1

REPORT INFORMATION
  Report Type: Report from Study
  Country: UA (occurrence: UA)
  Receive Date: 20150316
  Receipt Date: 20150316
  Transmission Date: 20150721
  Serious: Yes (Hospitalization)
  Sender: FDA-Public Use
  Company Number: UA-ROCHE-1549576

PATIENT
  Age: 71 Year
  Sex: Female
  Weight: 72 kg

DRUGS (17)
  1. STEROFUNDIN ISO (CALCIUM CHLORIDE DIHYDRATE/MAGNESIUM CHLORIDE HEXAHYD [Concomitant]
     Indication: PROPHYLAXIS
     Route: 065
     Dates: start: 20150303, end: 20150304
  2. TRASTUZUMAB [Suspect]
     Active Substance: TRASTUZUMAB
     Dosage: MAINTAINANCE DOSE
     Route: 042
     Dates: start: 20150302
  3. DOXORUBICIN [Suspect]
     Active Substance: DOXORUBICIN
     Indication: HER-2 POSITIVE BREAST CANCER
     Route: 065
     Dates: start: 20141117
  4. ONDANSETRON [Concomitant]
     Active Substance: ONDANSETRON
     Indication: PREMEDICATION
     Route: 065
     Dates: start: 20141114
  5. MILDRONATE [Concomitant]
     Route: 065
     Dates: start: 20150303, end: 20150304
  6. CLEMASTIN [Concomitant]
     Active Substance: CLEMASTINE
     Indication: PREMEDICATION
     Route: 065
     Dates: start: 20141114
  7. PERTUZUMAB [Suspect]
     Active Substance: PERTUZUMAB
     Indication: HER-2 POSITIVE BREAST CANCER
     Dosage: LOADING DOSE?MOST RECENT DOSE PRIOR TO SERIOUS ADVERSE EVENT WAS ADMINISTERED ON 02/MAR/2015
     Route: 042
     Dates: start: 20150209, end: 20150209
  8. TRASTUZUMAB [Suspect]
     Active Substance: TRASTUZUMAB
     Indication: HER-2 POSITIVE BREAST CANCER
     Dosage: LOADING DOSE?MOST RECENT DOSE PRIOR TO SERIOUS ADVERSE EVENT WAS ADMINISTERED ON 02/MAR/2015
     Route: 042
     Dates: start: 20150209, end: 20150209
  9. CYCLOPHOSPHAMIDE. [Suspect]
     Active Substance: CYCLOPHOSPHAMIDE
     Indication: HER-2 POSITIVE BREAST CANCER
     Route: 065
     Dates: start: 20141117
  10. ONDANSETRON [Concomitant]
     Active Substance: ONDANSETRON
     Route: 065
     Dates: start: 20150303, end: 20150304
  11. CORVITIN [Concomitant]
     Indication: PREMEDICATION
     Route: 065
     Dates: start: 20141114
  12. DOCETAXEL. [Suspect]
     Active Substance: DOCETAXEL
     Indication: HER-2 POSITIVE BREAST CANCER
     Dosage: MOST RECENT DOSE PRIOR TO SERIOUS ADVERSE EVENT WAS ADMINISTERED ON 02/MAR/2015
     Route: 042
     Dates: start: 20150209
  13. LOZAP PLUS [Concomitant]
     Indication: ESSENTIAL HYPERTENSION
     Route: 065
     Dates: start: 2000
  14. DEXAMETHASONE. [Concomitant]
     Active Substance: DEXAMETHASONE
     Indication: PREMEDICATION
     Route: 065
     Dates: start: 20150301, end: 20150303
  15. PERTUZUMAB [Suspect]
     Active Substance: PERTUZUMAB
     Dosage: MAINTAINANCE DOSE
     Route: 042
     Dates: start: 20150302
  16. AMLODIPINE [Concomitant]
     Active Substance: AMLODIPINE BESYLATE
     Indication: ESSENTIAL HYPERTENSION
     Route: 065
     Dates: start: 2000
  17. MILDRONATE [Concomitant]
     Indication: PREMEDICATION
     Route: 065
     Dates: start: 20141114

REACTIONS (1)
  - Hypotension [Recovered/Resolved]

NARRATIVE: CASE EVENT DATE: 20150305
